FAERS Safety Report 8703963 (Version 4)
Quarter: 2013Q4

REPORT INFORMATION
  Report Type: Spontaneous
  Country: US (occurrence: US)
  Receive Date: 20120803
  Receipt Date: 20131101
  Transmission Date: 20140711
  Serious: No
  Sender: FDA-Public Use
  Company Number: US-009507513-1207USA013044

PATIENT
  Age: 71 Year
  Sex: Female
  Weight: 68.27 kg

DRUGS (6)
  1. CLARITIN [Suspect]
     Indication: EYE SWELLING
     Dosage: 10 MG, QD
     Route: 048
     Dates: start: 201107
  2. CLARITIN [Suspect]
     Indication: MEDICAL OBSERVATION
     Dosage: UNK
  3. CLARITIN [Suspect]
     Indication: HYPERSENSITIVITY
  4. CLARITIN [Suspect]
     Indication: SNEEZING
  5. CLARITIN [Suspect]
     Indication: COUGH
  6. GABAPENTIN [Concomitant]
     Indication: SPINAL CORD NEOPLASM
     Dosage: UNK, UNKNOWN

REACTIONS (1)
  - Drug ineffective [Unknown]
